FAERS Safety Report 7597561-0 (Version None)
Quarter: 2011Q3

REPORT INFORMATION
  Report Type: 
  Country: None (occurrence: None)
  Receive Date: 20110708
  Receipt Date: 20110308
  Transmission Date: 20111222
  Serious: No
  Sender: FDA-Public Use
  Company Number: US-PFIZER INC-2011038840

PATIENT
  Sex: Female

DRUGS (1)
  1. ADVIL COLD AND SINUS [Suspect]
     Indication: NASOPHARYNGITIS
     Dosage: UNK
     Dates: start: 20110222

REACTIONS (2)
  - RHINORRHOEA [None]
  - NASAL DISORDER [None]
